FAERS Safety Report 7583767-3 (Version None)
Quarter: 2011Q2

REPORT INFORMATION
  Report Type: 
  Country: None (occurrence: None)
  Receive Date: 20110531
  Receipt Date: 20100910
  Transmission Date: 20111010
  Serious: Yes (Other)
  Sender: FDA-Public Use
  Company Number: 314752

PATIENT
  Age: 69 Year
  Sex: Female
  Weight: 70.3 kg

DRUGS (26)
  1. GLUCOSAMINE (GLUCOSAMINE) [Suspect]
     Indication: ARTHRITIS
     Dosage: 500MG, BID
  2. PREMARIN [Suspect]
     Indication: HORMONE REPLACEMENT THERAPY
     Dosage: 0.0625
     Dates: start: 19940602, end: 19960313
  3. PREMARIN [Suspect]
     Indication: MENOPAUSE
     Dosage: 0.0625
     Dates: start: 19940602, end: 19960313
  4. PREMARIN [Suspect]
     Indication: HOT FLUSH
     Dosage: 0.0625
     Dates: start: 19940602, end: 19960313
  5. PREMPRO [Suspect]
     Indication: HOT FLUSH
     Dosage: 0.625/2.5 ; 0.6250 - 2.5 ; 0.6250 - 2.5
     Dates: start: 19991014, end: 20000630
  6. PREMPRO [Suspect]
     Indication: MENOPAUSE
     Dosage: 0.625/2.5 ; 0.6250 - 2.5 ; 0.6250 - 2.5
     Dates: start: 19991014, end: 20000630
  7. PREMPRO [Suspect]
     Indication: HORMONE REPLACEMENT THERAPY
     Dosage: 0.625/2.5 ; 0.6250 - 2.5 ; 0.6250 - 2.5
     Dates: start: 19991014, end: 20000630
  8. PREMPRO [Suspect]
     Indication: HOT FLUSH
     Dosage: 0.625/2.5 ; 0.6250 - 2.5 ; 0.6250 - 2.5
     Dates: start: 20020606, end: 20021210
  9. PREMPRO [Suspect]
     Indication: MENOPAUSE
     Dosage: 0.625/2.5 ; 0.6250 - 2.5 ; 0.6250 - 2.5
     Dates: start: 20020606, end: 20021210
  10. PREMPRO [Suspect]
     Indication: HORMONE REPLACEMENT THERAPY
     Dosage: 0.625/2.5 ; 0.6250 - 2.5 ; 0.6250 - 2.5
     Dates: start: 20020606, end: 20021210
  11. PREMPRO [Suspect]
     Indication: HOT FLUSH
     Dosage: 0.625/2.5 ; 0.6250 - 2.5 ; 0.6250 - 2.5
     Dates: start: 20000911, end: 20010311
  12. PREMPRO [Suspect]
     Indication: MENOPAUSE
     Dosage: 0.625/2.5 ; 0.6250 - 2.5 ; 0.6250 - 2.5
     Dates: start: 20000911, end: 20010311
  13. PREMPRO [Suspect]
     Indication: HORMONE REPLACEMENT THERAPY
     Dosage: 0.625/2.5 ; 0.6250 - 2.5 ; 0.6250 - 2.5
     Dates: start: 20000911, end: 20010311
  14. CHONDROITIN (CHONDROITIN) [Suspect]
     Indication: ARTHRITIS
     Dosage: 400 MG, BID
  15. LEVOTHYROXINE SODIUM [Concomitant]
  16. DIABETA /00145301/ (GLIBENCLAMIDE) [Concomitant]
  17. ACTOS [Concomitant]
  18. ESTRACE [Suspect]
     Indication: MENOPAUSE
     Dosage: CREAM, 42.5 GRAMS, VAGINAL
     Route: 067
     Dates: start: 19980316, end: 19980801
  19. ESTRACE [Suspect]
     Indication: HORMONE REPLACEMENT THERAPY
     Dosage: CREAM, 42.5 GRAMS, VAGINAL
     Route: 067
     Dates: start: 19980316, end: 19980801
  20. ESTRACE [Suspect]
     Indication: HOT FLUSH
     Dosage: CREAM, 42.5 GRAMS, VAGINAL
     Route: 067
     Dates: start: 19980316, end: 19980801
  21. ACTIVELLA [Suspect]
     Indication: MENOPAUSE
     Dates: start: 20030103, end: 20030930
  22. ACTIVELLA [Suspect]
     Indication: HOT FLUSH
     Dates: start: 20030103, end: 20030930
  23. ACTIVELLA [Suspect]
     Indication: HORMONE REPLACEMENT THERAPY
     Dates: start: 20030103, end: 20030930
  24. PROVERA [Suspect]
     Indication: HORMONE REPLACEMENT THERAPY
     Dosage: 2.5
     Dates: start: 19940602, end: 19960313
  25. PROVERA [Suspect]
     Indication: MENOPAUSE
     Dosage: 2.5
     Dates: start: 19940602, end: 19960313
  26. PROVERA [Suspect]
     Indication: HOT FLUSH
     Dosage: 2.5
     Dates: start: 19940602, end: 19960313

REACTIONS (1)
  - BREAST CANCER [None]
